FAERS Safety Report 10657630 (Version 1)
Quarter: 2014Q4

REPORT INFORMATION
  Report Type: Spontaneous
  Country: US (occurrence: None)
  Receive Date: 20141215
  Receipt Date: 20141215
  Transmission Date: 20150529
  Serious: Yes (Hospitalization)
  Sender: FDA-Public Use
  Company Number: US-H14001-14-01758

PATIENT
  Age: 59 Year
  Sex: Female

DRUGS (9)
  1. PHENYTOIN (PHENYTOIN) (UNKNOWN) (PHENYTOIN) [Suspect]
     Active Substance: PHENYTOIN
     Indication: PRODUCT USED FOR UNKNOWN INDICATION
  2. ATORVASTATIN [Concomitant]
     Active Substance: ATORVASTATIN
  3. CHOLECALCIFEROL (COLECALCIFEROL) [Concomitant]
  4. OMEPRAZOLE. [Concomitant]
     Active Substance: OMEPRAZOLE
  5. ALENDRONATE (ALENDRONATE SODIUM) [Concomitant]
     Active Substance: ALENDRONATE SODIUM
  6. LEVOTHYROXINE [Concomitant]
     Active Substance: LEVOTHYROXINE
  7. LISINOPRIL (LISINOPRIL) (UNKNOWN) (LISINOPRIL) [Suspect]
     Active Substance: LISINOPRIL
     Indication: PRODUCT USED FOR UNKNOWN INDICATION
  8. INSULIN [Concomitant]
     Active Substance: INSULIN NOS
  9. FOLIC ACID. [Concomitant]
     Active Substance: FOLIC ACID

REACTIONS (7)
  - Hepatitis [None]
  - Angioedema [None]
  - Liver injury [None]
  - Alanine aminotransferase increased [None]
  - Blood alkaline phosphatase increased [None]
  - Drug reaction with eosinophilia and systemic symptoms [None]
  - Aspartate aminotransferase increased [None]
